FAERS Safety Report 25771990 (Version 3)
Quarter: 2025Q4

REPORT INFORMATION
  Report Type: Spontaneous
  Country: AR (occurrence: AR)
  Receive Date: 20250908
  Receipt Date: 20251110
  Transmission Date: 20260117
  Serious: Yes (Hospitalization)
  Sender: SANDOZ
  Company Number: AR-SANDOZ-SDZ2025AR007895

PATIENT
  Sex: Female

DRUGS (1)
  1. HYRIMOZ [Suspect]
     Active Substance: ADALIMUMAB-ADAZ
     Indication: Psoriasis
     Dosage: 40MG /0.8ML PENS PREFILLED X 2 DOSE: 40, FREQ: 2
     Route: 058
     Dates: start: 20250115, end: 20250819

REACTIONS (7)
  - Haemorrhoid operation [Not Recovered/Not Resolved]
  - Pain [Recovering/Resolving]
  - Anal fissure [Recovering/Resolving]
  - Intestinal prolapse [Recovering/Resolving]
  - Urinary tract infection [Not Recovered/Not Resolved]
  - Psoriasis [Not Recovered/Not Resolved]
  - Drug ineffective [Unknown]

NARRATIVE: CASE EVENT DATE: 20250101
